APPROVED DRUG PRODUCT: METFORMIN HYDROCHLORIDE
Active Ingredient: METFORMIN HYDROCHLORIDE
Strength: 850MG
Dosage Form/Route: TABLET;ORAL
Application: A078422 | Product #002
Applicant: IPCA LABORATORIES LTD
Approved: Aug 6, 2007 | RLD: No | RS: No | Type: DISCN